FAERS Safety Report 19030867 (Version 2)
Quarter: 2021Q1

REPORT INFORMATION
  Report Type: Spontaneous
  Country: US (occurrence: US)
  Receive Date: 20210319
  Receipt Date: 20210331
  Transmission Date: 20210420
  Serious: Yes (Hospitalization, Other)
  Sender: FDA-Public Use
  Company Number: US-INCYTE CORPORATION-2021IN001976

PATIENT

DRUGS (1)
  1. JAKAFI [Suspect]
     Active Substance: RUXOLITINIB
     Indication: MYELOFIBROSIS
     Dosage: 5 MILLIGRAM, BID
     Route: 048
     Dates: start: 20201207

REACTIONS (8)
  - Fall [Unknown]
  - Blood pressure decreased [Not Recovered/Not Resolved]
  - Blood count abnormal [Unknown]
  - Fibrosis [Unknown]
  - Gastric ulcer [Unknown]
  - Platelet count decreased [Unknown]
  - Neoplasm recurrence [Unknown]
  - Sepsis [Not Recovered/Not Resolved]
